FAERS Safety Report 9642446 (Version 1)
Quarter: 2013Q4

REPORT INFORMATION
  Report Type: Spontaneous
  Country: US (occurrence: US)
  Receive Date: 20131024
  Receipt Date: 20131024
  Transmission Date: 20140711
  Serious: No
  Sender: FDA-Public Use
  Company Number: US-009507513-1309USA012613

PATIENT
  Sex: Male

DRUGS (2)
  1. SYLATRON [Suspect]
     Indication: MALIGNANT MELANOMA
     Dosage: UNK
     Route: 058
  2. SYLATRON [Suspect]
     Dosage: 1 MCG/KG
     Route: 058

REACTIONS (1)
  - Injection site erythema [Unknown]
